FAERS Safety Report 24117830 (Version 1)
Quarter: 2024Q3

REPORT INFORMATION
  Report Type: Spontaneous
  Country: DE (occurrence: DE)
  Receive Date: 20240722
  Receipt Date: 20240722
  Transmission Date: 20241017
  Serious: Yes (Other)
  Sender: Unknown Manufacturer
  Company Number: DE-RECORDATI-2024004916

PATIENT

DRUGS (1)
  1. METOPROLOL SUCCINATE [Suspect]
     Active Substance: METOPROLOL SUCCINATE
     Indication: Product used for unknown indication
     Dosage: 1 DOSAGE FORM, TID
     Route: 048
     Dates: start: 2020

REACTIONS (2)
  - Ageusia [Recovered/Resolved]
  - Depression [Unknown]
